FAERS Safety Report 21631689 (Version 2)
Quarter: 2022Q4

REPORT INFORMATION
  Report Type: Spontaneous
  Country: JP (occurrence: None)
  Receive Date: 20221123
  Receipt Date: 20221205
  Transmission Date: 20230113
  Serious: Yes (Hospitalization)
  Sender: FDA-Public Use
  Company Number: 2022A382561

PATIENT
  Age: 58 Year
  Sex: Male

DRUGS (4)
  1. DAPAGLIFLOZIN [Suspect]
     Active Substance: DAPAGLIFLOZIN
     Indication: Type 2 diabetes mellitus
     Dosage: DOSE UNKNOWN
     Route: 048
  2. METFORMIN HYDROCHLORIDE [Concomitant]
     Active Substance: METFORMIN HYDROCHLORIDE
     Indication: Type 2 diabetes mellitus
     Dosage: DOSE UNKNOWN
     Route: 065
  3. SEMAGLUTIDE(GENETICAL RECOMBINATION) [Concomitant]
     Indication: Type 2 diabetes mellitus
     Dosage: 3.0MG UNKNOWN
     Route: 048
  4. SEMAGLUTIDE(GENETICAL RECOMBINATION) [Concomitant]
     Indication: Type 2 diabetes mellitus
     Dosage: 7.0MG UNKNOWN
     Route: 048

REACTIONS (7)
  - Dehydration [Unknown]
  - Cardiac arrest [Unknown]
  - Decreased appetite [Unknown]
  - Diarrhoea [Unknown]
  - Lactic acidosis [Recovered/Resolved]
  - Acute kidney injury [Recovered/Resolved]
  - Diabetic ketoacidosis [Recovered/Resolved]
